FAERS Safety Report 10022668 (Version 2)
Quarter: 2014Q2

REPORT INFORMATION
  Report Type: Spontaneous
  Country: BR (occurrence: BR)
  Receive Date: 20140319
  Receipt Date: 20140501
  Transmission Date: 20141212
  Serious: Yes (Other)
  Sender: FDA-Public Use
  Company Number: BR-PFIZER INC-2014076194

PATIENT
  Age: 77 Year
  Sex: Male
  Weight: 54 kg

DRUGS (2)
  1. LIPITOR [Suspect]
     Indication: ARTERIOSCLEROSIS
     Dosage: UNK
     Route: 048
     Dates: start: 2011, end: 2011
  2. ASPIRINA PREVENT [Concomitant]
     Dosage: UNK
     Dates: start: 2011

REACTIONS (4)
  - Carotid artery occlusion [Unknown]
  - Coronary artery disease [Unknown]
  - Arterial disorder [Unknown]
  - Chest pain [Unknown]
